FAERS Safety Report 9958413 (Version 2)
Quarter: 2014Q1

REPORT INFORMATION
  Report Type: Spontaneous
  Country: MX (occurrence: MX)
  Receive Date: 20140305
  Receipt Date: 20140305
  Transmission Date: 20141002
  Serious: Yes (Disabling)
  Sender: FDA-Public Use
  Company Number: MX-ROCHE-1352204

PATIENT
  Sex: Male

DRUGS (1)
  1. ROACTEMRA [Suspect]
     Indication: RHEUMATOID ARTHRITIS
     Route: 042

REACTIONS (4)
  - Gait disturbance [Recovering/Resolving]
  - Hypercholesterolaemia [Recovered/Resolved]
  - Hypertriglyceridaemia [Recovered/Resolved]
  - Drug ineffective [Unknown]
